FAERS Safety Report 5049514-4 (Version None)
Quarter: 2006Q3

REPORT INFORMATION
  Report Type: 
  Country: None (occurrence: None)
  Receive Date: 20060712
  Receipt Date: 20060530
  Transmission Date: 20061208
  Serious: Yes (Life-Threatening, Disabling, Other)
  Sender: FDA-Public Use
  Company Number: JP-NOVOPROD-253738

PATIENT
  Age: 21 Year
  Sex: Female

DRUGS (7)
  1. PENFILL 30R CHU [Suspect]
     Indication: DIABETES MELLITUS INSULIN-DEPENDENT
     Dosage: 5-15 IU
     Route: 058
     Dates: start: 20010808, end: 20011214
  2. PENFILL 50R CHU [Suspect]
     Indication: DIABETES MELLITUS INSULIN-DEPENDENT
     Dosage: 10 IU
     Route: 058
     Dates: start: 20010824, end: 20011205
  3. PENFILL 50R CHU [Suspect]
     Route: 058
     Dates: start: 20011221
  4. NEUQUINON [Concomitant]
     Indication: MELAS SYNDROME
     Dosage: 150 MG
     Route: 048
     Dates: start: 19980101, end: 20011214
  5. FURSULTIAMINE [Concomitant]
     Indication: MELAS SYNDROME
     Dosage: 150 MG
     Route: 048
     Dates: end: 20011214
  6. CYTOREST [Concomitant]
     Indication: MELAS SYNDROME
     Dosage: 3 CAPS
     Route: 048
  7. ALEVIATIN                          /00017401/ [Concomitant]
     Indication: MELAS SYNDROME
     Dosage: 1-2 TABLETS
     Route: 048
     Dates: start: 19980101, end: 20011214

REACTIONS (3)
  - HEADACHE [None]
  - STATUS EPILEPTICUS [None]
  - VOMITING [None]
